FAERS Safety Report 4366514-8 (Version None)
Quarter: 2004Q2

REPORT INFORMATION
  Report Type: 
  Country: None (occurrence: None)
  Receive Date: 20040524
  Receipt Date: 20040510
  Transmission Date: 20050107
  Serious: Yes (Other)
  Sender: FDA-Public Use
  Company Number: 200410316BNE

PATIENT
  Age: 39 Year
  Sex: Female

DRUGS (2)
  1. CIPROFLOXACIN [Suspect]
     Indication: URINARY TRACT INFECTION
     Dosage: 250 MG, BID, ORAL
     Route: 048
     Dates: start: 20040414, end: 20040417
  2. VALPROATE SODIUM [Concomitant]

REACTIONS (6)
  - ANAEMIA [None]
  - DISORIENTATION [None]
  - HALLUCINATION, VISUAL [None]
  - HYPONATRAEMIA [None]
  - MALAISE [None]
  - NEUTROPENIA [None]
